FAERS Safety Report 22988815 (Version 2)
Quarter: 2024Q1

REPORT INFORMATION
  Report Type: Spontaneous
  Country: FR (occurrence: FR)
  Receive Date: 20230926
  Receipt Date: 20240125
  Transmission Date: 20240410
  Serious: Yes (Life-Threatening, Hospitalization)
  Sender: FDA-Public Use
  Company Number: FR-BAXTER-2023BAX030811

PATIENT
  Age: 73 Year
  Sex: Female

DRUGS (13)
  1. DOXORUBICIN [Suspect]
     Active Substance: DOXORUBICIN
     Indication: Diffuse large B-cell lymphoma
     Dosage: 87.8 MILLIGRAM, EVERY 3 WEEKS
     Route: 042
     Dates: start: 20230727
  2. DOXORUBICIN [Suspect]
     Active Substance: DOXORUBICIN
     Dosage: 87.8 MILLIGRAM, EVERY 3 WEEKS
     Route: 042
     Dates: start: 20230818
  3. PREDNISONE [Suspect]
     Active Substance: PREDNISONE
     Indication: Diffuse large B-cell lymphoma
     Dosage: 100 MILLIGRAM (DAY 1-5, EVERY 3 WEEKS, EVERY 1 DAY, ONGOING)
     Route: 048
     Dates: start: 20230727
  4. CYCLOPHOSPHAMIDE [Suspect]
     Active Substance: CYCLOPHOSPHAMIDE
     Indication: Diffuse large B-cell lymphoma
     Dosage: 1325 MILLIGRAM, EVERY 3 WEEKS
     Route: 042
     Dates: start: 20230727
  5. EPCORITAMAB [Suspect]
     Active Substance: EPCORITAMAB
     Indication: Diffuse large B-cell lymphoma
     Dosage: 0.16 MILLIGRAM, TOTAL
     Route: 058
     Dates: start: 20230727
  6. EPCORITAMAB [Suspect]
     Active Substance: EPCORITAMAB
     Dosage: 0.6 MILLIGRAM, ONCE A DAY)
     Route: 058
     Dates: start: 20230728, end: 20230728
  7. EPCORITAMAB [Suspect]
     Active Substance: EPCORITAMAB
     Dosage: 0.8 MILLIGRAM, ONCE A DAY ( INTERMEDIATE DOSE, C1, D8, TOTAL)
     Route: 058
     Dates: start: 20230804, end: 20230804
  8. EPCORITAMAB [Suspect]
     Active Substance: EPCORITAMAB
     Dosage: 48 MILLIGRAM, ONCE A DAY (, FULL DOSE, C1, D15, TOTAL)
     Route: 058
     Dates: start: 20230811, end: 20230811
  9. EPCORITAMAB [Suspect]
     Active Substance: EPCORITAMAB
     Dosage: 48 MILLIGRAM (C2-4, D1, 8 + 15, EVERY 1 WEEKS, ONGOING)
     Route: 058
     Dates: start: 20230818
  10. RITUXIMAB [Suspect]
     Active Substance: RITUXIMAB
     Indication: Diffuse large B-cell lymphoma
     Dosage: 660 MILLIGRAM EVERY 3 WEEK
     Route: 042
     Dates: start: 20230727
  11. VINCRISTINE [Suspect]
     Active Substance: VINCRISTINE
     Indication: Diffuse large B-cell lymphoma
     Dosage: 2 MILLIGRAM, EVERY 3 WEEKS
     Route: 042
     Dates: start: 20230727
  12. POLYETHYLENE GLYCOLS [Concomitant]
     Active Substance: POLYETHYLENE GLYCOLS
     Indication: Constipation prophylaxis
     Dosage: 2 BAG, 2/DAYS
     Route: 065
     Dates: start: 2023
  13. PANTOPRAZOLE [Concomitant]
     Active Substance: PANTOPRAZOLE
     Indication: Gastrointestinal disorder prophylaxis
     Dosage: 40 MG, 2/DAYS
     Route: 065
     Dates: start: 2023

REACTIONS (4)
  - Stomatitis [Not Recovered/Not Resolved]
  - Odynophagia [Unknown]
  - Dehydration [Unknown]
  - Oral pain [Unknown]

NARRATIVE: CASE EVENT DATE: 20230828
